FAERS Safety Report 19914068 (Version 3)
Quarter: 2023Q4

REPORT INFORMATION
  Report Type: Spontaneous
  Country: JP (occurrence: JP)
  Receive Date: 20211004
  Receipt Date: 20231113
  Transmission Date: 20240109
  Serious: Yes (Other)
  Sender: FDA-Public Use
  Company Number: JP-SANOFI-2021SA157617

PATIENT
  Age: 5 Month
  Sex: Male
  Weight: 6.52 kg

DRUGS (19)
  1. SABRIL [Suspect]
     Active Substance: VIGABATRIN
     Indication: Infantile spasms
     Dosage: 250 MG, BID
     Route: 048
     Dates: start: 20200508, end: 20200515
  2. SABRIL [Suspect]
     Active Substance: VIGABATRIN
     Dosage: 150 MG, BID
     Route: 048
     Dates: start: 20200414, end: 20200416
  3. SABRIL [Suspect]
     Active Substance: VIGABATRIN
     Dosage: 225 MG, BID
     Route: 048
     Dates: start: 20200417, end: 20200419
  4. SABRIL [Suspect]
     Active Substance: VIGABATRIN
     Dosage: 300 MG, BID
     Route: 048
     Dates: start: 20200420, end: 20200422
  5. SABRIL [Suspect]
     Active Substance: VIGABATRIN
     Dosage: 375 MG, BID
     Route: 048
     Dates: start: 20200423, end: 20200425
  6. SABRIL [Suspect]
     Active Substance: VIGABATRIN
     Dosage: 450 MG, BID
     Route: 048
     Dates: start: 20200426, end: 20200428
  7. SABRIL [Suspect]
     Active Substance: VIGABATRIN
     Dosage: 500 MG, BID
     Route: 048
     Dates: start: 20200429, end: 20200507
  8. CLOBAZAM [Suspect]
     Active Substance: CLOBAZAM
     Indication: Infantile spasms
     Dosage: UNK
     Route: 048
  9. CLOBAZAM [Suspect]
     Active Substance: CLOBAZAM
     Dosage: DAILY DOSE: 1.4 MG
     Route: 048
     Dates: end: 20200522
  10. CLONAZEPAM [Suspect]
     Active Substance: CLONAZEPAM
     Indication: Infantile spasms
     Dosage: DAILY DOSE: 0.2 MG
     Route: 048
     Dates: start: 20200508, end: 20200511
  11. ZONISAMIDE [Concomitant]
     Active Substance: ZONISAMIDE
     Indication: Infantile spasms
     Dosage: DAILY DOSE: 80 MG
     Route: 048
     Dates: start: 20200406
  12. CHLORAL HYDRATE [Concomitant]
     Active Substance: CHLORAL HYDRATE
     Indication: Infantile spasms
     Dosage: DAILY DOSE: 250 MG
     Route: 065
     Dates: start: 20200430
  13. TRICLOFOS SODIUM [Concomitant]
     Active Substance: TRICLOFOS SODIUM
     Indication: Infantile spasms
     Dosage: DAILY DOSE: 300 MG
     Route: 048
     Dates: start: 20200511
  14. ARTANE [Concomitant]
     Active Substance: TRIHEXYPHENIDYL HYDROCHLORIDE
     Indication: Infantile spasms
     Dosage: DAILY DOSE: 0.4 MG
     Route: 048
     Dates: start: 20200612
  15. TOPIRAMATE [Concomitant]
     Active Substance: TOPIRAMATE
     Indication: Infantile spasms
     Dosage: DAILY DOSE: 10 MG
     Route: 048
     Dates: start: 20200522, end: 20200608
  16. VITAMIN B6 [Concomitant]
     Active Substance: PYRIDOXINE HYDROCHLORIDE
     Indication: Infantile spasms
     Dosage: DAILY DOSE: 300 MG
     Route: 048
     Dates: start: 20200316, end: 20200323
  17. SUCROSE [Concomitant]
     Active Substance: SUCROSE
     Indication: Infantile spasms
     Dosage: DAILY DOSE: 10 ML
     Route: 048
     Dates: start: 20200423, end: 20200430
  18. VALPROATE SODIUM [Concomitant]
     Active Substance: VALPROATE SODIUM
     Indication: Infantile spasms
     Dosage: DAILY DOSE: 180 MG
     Route: 048
     Dates: start: 20200323
  19. LEVOCARNITINE HYDROCHLORIDE [Concomitant]
     Active Substance: LEVOCARNITINE HYDROCHLORIDE
     Indication: Product used for unknown indication
     Dosage: DAILY DOSE: 200 MG
     Route: 048
     Dates: start: 20200323

REACTIONS (4)
  - Laryngomalacia [Not Recovered/Not Resolved]
  - Wheezing [Not Recovered/Not Resolved]
  - Gastrooesophageal reflux disease [Not Recovered/Not Resolved]
  - Drug ineffective [Unknown]

NARRATIVE: CASE EVENT DATE: 20200101
